FAERS Safety Report 18060361 (Version 1)
Quarter: 2020Q3

REPORT INFORMATION
  Report Type: Spontaneous
  Country: US (occurrence: US)
  Receive Date: 20200723
  Receipt Date: 20200723
  Transmission Date: 20201103
  Serious: Yes (Other)
  Sender: FDA-Public Use
  Company Number: US-SPECGX-T202001352

PATIENT
  Age: 29 Year
  Sex: Male

DRUGS (3)
  1. FENTANYL CITRATE. [Suspect]
     Active Substance: FENTANYL CITRATE
     Indication: PRODUCT USED FOR UNKNOWN INDICATION
     Dosage: UNK
     Route: 045
  2. MARIJUANA [Suspect]
     Active Substance: CANNABIS SATIVA SUBSP. INDICA TOP
     Indication: PRODUCT USED FOR UNKNOWN INDICATION
     Dosage: UNK
     Route: 045
  3. HEROIN [Suspect]
     Active Substance: DIAMORPHINE
     Indication: PRODUCT USED FOR UNKNOWN INDICATION
     Dosage: UNK
     Route: 045

REACTIONS (3)
  - Product use issue [Unknown]
  - Deafness [Unknown]
  - Hypoxia [Unknown]
